FAERS Safety Report 10346905 (Version 3)
Quarter: 2014Q4

REPORT INFORMATION
  Report Type: Report from Study
  Country: AU (occurrence: AU)
  Receive Date: 20140729
  Receipt Date: 20141021
  Transmission Date: 20150528
  Serious: Yes (Other)
  Sender: FDA-Public Use
  Company Number: AU-ROCHE-1440660

PATIENT
  Sex: Female
  Weight: 76 kg

DRUGS (1)
  1. ACTEMRA [Suspect]
     Active Substance: TOCILIZUMAB
     Indication: RHEUMATOID ARTHRITIS
     Route: 042
     Dates: start: 20110313, end: 20140901

REACTIONS (5)
  - Wound [Unknown]
  - Urinary tract infection [Unknown]
  - Rash [Unknown]
  - Malaise [Unknown]
  - Blister [Unknown]
